FAERS Safety Report 17852904 (Version 1)
Quarter: 2020Q2

REPORT INFORMATION
  Report Type: Spontaneous
  Country: US (occurrence: US)
  Receive Date: 20200602
  Receipt Date: 20200602
  Transmission Date: 20200714
  Serious: No
  Sender: FDA-Public Use
  Company Number: US-FOUNDATIONCONSUMERHC-2019-US-024519

PATIENT
  Age: 27 Year
  Sex: Female
  Weight: 67.13 kg

DRUGS (4)
  1. MELATONIN [Concomitant]
     Active Substance: MELATONIN
  2. PLAN B ONE-STEP [Suspect]
     Active Substance: LEVONORGESTREL
     Indication: POST COITAL CONTRACEPTION
     Dosage: 1.5 MG X 1 DOSE
     Route: 048
     Dates: start: 20191125, end: 20191125
  3. MELATONIN [Concomitant]
     Active Substance: MELATONIN
  4. UNSPECIFIED VITAMIN [Concomitant]
     Active Substance: VITAMINS

REACTIONS (3)
  - Dysmenorrhoea [Recovered/Resolved]
  - Menstruation delayed [Not Recovered/Not Resolved]
  - Menorrhagia [Recovered/Resolved]

NARRATIVE: CASE EVENT DATE: 20191129
